FAERS Safety Report 6567022-6 (Version None)
Quarter: 2010Q1

REPORT INFORMATION
  Report Type: 
  Country: None (occurrence: None)
  Receive Date: 20100127
  Receipt Date: 20100115
  Transmission Date: 20100710
  Serious: Yes (Other)
  Sender: FDA-Public Use
  Company Number: DK-1180496

PATIENT

DRUGS (1)
  1. BSS (BSS) OPHTHALMIC SOLUTION IRRIGATION SOLUTION [Suspect]
     Dosage: INTRAOCULAR
     Route: 031

REACTIONS (2)
  - ANTERIOR CHAMBER DISORDER [None]
  - PROCEDURAL COMPLICATION [None]
